FAERS Safety Report 20783995 (Version 4)
Quarter: 2022Q2

REPORT INFORMATION
  Report Type: Report from Study
  Country: FR (occurrence: FR)
  Receive Date: 20220504
  Receipt Date: 20220613
  Transmission Date: 20220720
  Serious: Yes (Hospitalization)
  Sender: FDA-Public Use
  Company Number: FR-TAKEDA-2022TUS029085

PATIENT
  Age: 78 Year
  Sex: Female

DRUGS (24)
  1. PEMETREXED [Suspect]
     Active Substance: PEMETREXED
     Indication: Non-small cell lung cancer
     Dosage: 500 MILLIGRAM/SQ. METER
     Route: 042
     Dates: start: 20220225, end: 20220225
  2. CARBOPLATIN [Suspect]
     Active Substance: CARBOPLATIN
     Indication: Non-small cell lung cancer
     Dosage: 5 MILLIGRAM PER MILLILITRE
     Route: 042
     Dates: start: 20220225, end: 20220225
  3. ONDANSETRON [Concomitant]
     Active Substance: ONDANSETRON
     Indication: Prophylactic chemotherapy
     Dosage: 8 MILLIGRAM, Q3WEEKS
     Route: 042
     Dates: start: 20220225
  4. FOLIC ACID [Concomitant]
     Active Substance: FOLIC ACID
     Indication: Prophylactic chemotherapy
     Dosage: 0.4 MILLIGRAM, QD
     Route: 048
     Dates: start: 20220218
  5. CYANOCOBALAMIN [Concomitant]
     Active Substance: CYANOCOBALAMIN
     Indication: Prophylactic chemotherapy
     Dosage: 1 MILLIGRAM
     Route: 048
     Dates: start: 20220218
  6. SKENAN [Concomitant]
     Active Substance: MORPHINE SULFATE
     Indication: Bone pain
     Dosage: 10 MILLIGRAM, BID
     Route: 048
     Dates: start: 20220208
  7. MORPHINE SULFATE [Concomitant]
     Active Substance: MORPHINE SULFATE
     Indication: Bone pain
     Dosage: 5 MILLIGRAM
     Route: 048
     Dates: start: 20220208
  8. APREPITANT [Concomitant]
     Active Substance: APREPITANT
     Indication: Prophylactic chemotherapy
     Dosage: 125 MILLIGRAM, Q3WEEKS
     Route: 048
     Dates: start: 20220225
  9. APREPITANT [Concomitant]
     Active Substance: APREPITANT
     Dosage: 80 MILLIGRAM
     Route: 048
     Dates: start: 20220226
  10. FILGRASTIM [Concomitant]
     Active Substance: FILGRASTIM
     Indication: Prophylactic chemotherapy
     Dosage: UNK
     Route: 058
     Dates: start: 20220228
  11. ACETAMINOPHEN [Concomitant]
     Active Substance: ACETAMINOPHEN
     Indication: Bone pain
     Dosage: 1 GRAM
     Route: 048
     Dates: start: 20220208
  12. PREDNISOLONE [Concomitant]
     Active Substance: PREDNISOLONE
     Indication: Prophylactic chemotherapy
     Dosage: 20 MILLIGRAM
     Route: 048
     Dates: start: 20220224
  13. OLANZAPINE [Concomitant]
     Active Substance: OLANZAPINE
     Indication: Prophylaxis of nausea and vomiting
     Dosage: 5 MILLIGRAM
     Route: 048
     Dates: start: 20220318
  14. BACTRIM [Concomitant]
     Active Substance: SULFAMETHOXAZOLE\TRIMETHOPRIM
     Indication: Infection prophylaxis
     Dosage: UNK UNK, TID
     Route: 048
     Dates: start: 20220303, end: 20220331
  15. PANTOPRAZOLE [Concomitant]
     Active Substance: PANTOPRAZOLE
     Indication: Prophylaxis
     Dosage: 40 MILLIGRAM, QD
     Route: 042
     Dates: start: 20220303
  16. METHYLPREDNISOLONE [Concomitant]
     Active Substance: METHYLPREDNISOLONE
     Indication: Prophylactic chemotherapy
     Dosage: 20 MILLIGRAM, QD
     Route: 042
     Dates: start: 20220308
  17. PHLOROGLUCINOL [Concomitant]
     Active Substance: PHLOROGLUCINOL
     Indication: Abdominal pain
     Dosage: 80 MILLIGRAM, BID
     Route: 042
     Dates: start: 20220303, end: 20220331
  18. PRIMPERAN [Concomitant]
     Active Substance: METOCLOPRAMIDE HYDROCHLORIDE
     Indication: Nausea
     Dosage: 10 MILLIGRAM, BID
     Route: 042
     Dates: start: 20220303, end: 20220425
  19. PLATELETS [Concomitant]
     Active Substance: HUMAN PLATELET, ALLOGENIC
     Indication: Platelet count decreased
     Dosage: UNK
     Route: 042
     Dates: start: 20220329, end: 20220329
  20. PLATELETS [Concomitant]
     Active Substance: HUMAN PLATELET, ALLOGENIC
     Dosage: UNK
     Route: 042
     Dates: start: 20220421, end: 20220421
  21. HUMAN RED BLOOD CELL [Concomitant]
     Active Substance: HUMAN RED BLOOD CELL
     Indication: Anaemia
     Dosage: 287 MILLILITER
     Route: 042
     Dates: start: 20220414, end: 20220414
  22. 1,3,5-TRIMETHOXYBENZENE [Concomitant]
     Active Substance: 1,3,5-TRIMETHOXYBENZENE
     Indication: Abdominal pain
     Dosage: 80 MILLIGRAM, BID
     Route: 042
     Dates: start: 20220303, end: 20220331
  23. MOVICOL [Concomitant]
     Active Substance: POLYETHYLENE GLYCOL 3350\POTASSIUM CHLORIDE\SODIUM BICARBONATE\SODIUM CHLORIDE
     Indication: Constipation
     Route: 048
  24. PROLIA [Concomitant]
     Active Substance: DENOSUMAB
     Indication: Osteoporosis
     Dosage: 60 MILLIGRAM, Q6MONTHS
     Route: 058
     Dates: start: 2012

REACTIONS (1)
  - Hepatic cytolysis [Recovered/Resolved]

NARRATIVE: CASE EVENT DATE: 20220427
